FAERS Safety Report 14179912 (Version 1)
Quarter: 2017Q4

REPORT INFORMATION
  Report Type: Spontaneous
  Country: None (occurrence: US)
  Receive Date: 20171110
  Receipt Date: 20171110
  Transmission Date: 20180321
  Serious: Yes (Hospitalization)
  Sender: FDA-Public Use
  Company Number: US-STANDARD HOMEOPATHIC COMPANY-2033826

PATIENT
  Age: 3 Year
  Sex: Male

DRUGS (1)
  1. NIGHTTIME COLD N COUGH 4 KIDS [Suspect]
     Active Substance: HOMEOPATHICS
     Indication: NASOPHARYNGITIS
     Route: 048
     Dates: start: 20171027, end: 20171027

REACTIONS (2)
  - Hypoglycaemia [None]
  - Hypokalaemia [None]

NARRATIVE: CASE EVENT DATE: 20171027
